FAERS Safety Report 21521390 (Version 1)
Quarter: 2022Q4

REPORT INFORMATION
  Report Type: Spontaneous
  Country: DE (occurrence: DE)
  Receive Date: 20221028
  Receipt Date: 20221028
  Transmission Date: 20230113
  Serious: Yes (Other)
  Sender: FDA-Public Use
  Company Number: DE-BAXTER-2022BAX020363

PATIENT

DRUGS (24)
  1. BORTEZOMIB [Suspect]
     Active Substance: BORTEZOMIB
     Indication: Plasma cell myeloma refractory
     Dosage: FIFTH LINE TREATMENT, DURATION : 12 DAYS
     Dates: start: 20170601, end: 20170612
  2. BORTEZOMIB [Suspect]
     Active Substance: BORTEZOMIB
     Dosage: MOST RECENT LINE TREATMENT, VDT PACE, DURATION : 200 DAYS
     Dates: start: 20220215, end: 20220902
  3. CISPLATIN [Suspect]
     Active Substance: CISPLATIN
     Indication: Plasma cell myeloma refractory
     Dosage: MOST RECENT LINE TREATMENT, VDT PACE, DURATION : 200 MG
     Dates: start: 20220215, end: 20220902
  4. DOXORUBICIN [Suspect]
     Active Substance: DOXORUBICIN
     Indication: Plasma cell myeloma refractory
     Dosage: MOST RECENT LINE TREATMENT, VDT PACE, DURATION : 200 DAYS
     Dates: start: 20220215, end: 20220902
  5. DEXAMETHASONE [Suspect]
     Active Substance: DEXAMETHASONE
     Indication: Plasma cell myeloma refractory
     Dosage: FIFTH LINE TREATMENT, DURATION : 12 DAYS
     Dates: start: 20170601, end: 20170612
  6. DEXAMETHASONE [Suspect]
     Active Substance: DEXAMETHASONE
     Dosage: THIRD LINE TREATMENT, DURATION : 467 DAYS
     Dates: start: 20140220, end: 20150601
  7. DEXAMETHASONE [Suspect]
     Active Substance: DEXAMETHASONE
     Dosage: , DURATION : 352 DAYS,FOURTH LINE TREATMENT
     Dates: start: 20160301, end: 20170215
  8. DEXAMETHASONE [Suspect]
     Active Substance: DEXAMETHASONE
     Dosage: DURATION : 200 DAYS,MOST RECENT LINE TREATMENT, VDT PACE
     Dates: start: 20220215, end: 20220902
  9. DEXAMETHASONE [Suspect]
     Active Substance: DEXAMETHASONE
     Dosage: DURATION : 48 DAYS, SIXTH LINE TREATMENT
     Dates: start: 20170718, end: 20170903
  10. DEXAMETHASONE [Suspect]
     Active Substance: DEXAMETHASONE
     Dosage: DURATION : 150 DAYS, FIRST LINE TREATMENT
     Dates: start: 20130501, end: 20130927
  11. LENALIDOMIDE [Suspect]
     Active Substance: LENALIDOMIDE
     Indication: Plasma cell myeloma refractory
     Dosage: DURATION : 352 DAY, FOURTH LINE TREATMENT
     Dates: start: 20160301, end: 20170215
  12. LENALIDOMIDE [Suspect]
     Active Substance: LENALIDOMIDE
     Dosage: DURATION : 467 DAYS, THIRD LINE TREATMENT
     Dates: start: 20140220, end: 20150601
  13. LENALIDOMIDE [Suspect]
     Active Substance: LENALIDOMIDE
     Dosage: DURATION : 48 DAYS, SIXTH LINE TREATMENT
     Dates: start: 20170718, end: 20170903
  14. LENALIDOMIDE [Suspect]
     Active Substance: LENALIDOMIDE
     Dosage: DURATION : 150 DAYS, FIRST LINE TREATMENT
     Dates: start: 20130501, end: 20130927
  15. ETOPOSIDE [Suspect]
     Active Substance: ETOPOSIDE
     Indication: Plasma cell myeloma refractory
     Dosage: DURATION : 200 DAYS, MOST RECENT LINE TREATMENT, VDT PACE
     Dates: start: 20220215, end: 20220902
  16. DEXAMETHASONE [Suspect]
     Active Substance: DEXAMETHASONE
     Indication: Plasma cell myeloma refractory
     Dosage: THERAPY START DATE AND END DATE : ASKU
  17. THALIDOMIDE [Suspect]
     Active Substance: THALIDOMIDE
     Indication: Plasma cell myeloma refractory
     Dosage: DURATION : 200 DAYS, MOST RECENT LINE TREATMENT, VDT PACE
     Dates: start: 20220215, end: 20220902
  18. IXAZOMIB [Suspect]
     Active Substance: IXAZOMIB
     Indication: Plasma cell myeloma refractory
     Dosage: , DURATION : 48 DAYS, SIXTH LINE TREATMENT
     Dates: start: 20170718, end: 20170903
  19. CYCLOPHOSPHAMIDE [Suspect]
     Active Substance: CYCLOPHOSPHAMIDE
     Indication: Plasma cell myeloma refractory
     Dosage: DURATION : 200 DAYS, MOST RECENT LINE TREATMENT, VDT PACE
     Dates: start: 20220215, end: 20220902
  20. CYCLOPHOSPHAMIDE [Suspect]
     Active Substance: CYCLOPHOSPHAMIDE
     Dosage: DURATION : 12 DAYS, FIFTH LINE TREATMENT.
     Dates: start: 20170601, end: 20170612
  21. CYCLOPHOSPHAMIDE [Suspect]
     Active Substance: CYCLOPHOSPHAMIDE
     Dosage: DURATION : 150 DAYS, FIRST LINE TREATMENT
     Dates: start: 20130501, end: 20130927
  22. BELANTAMAB MAFODOTIN [Suspect]
     Active Substance: BELANTAMAB MAFODOTIN
     Indication: Plasma cell myeloma refractory
     Dosage: THERAPY START DATE AND END DATE : ASKU
  23. ELOTUZUMAB [Suspect]
     Active Substance: ELOTUZUMAB
  24. POMALIDOMIDE [Suspect]
     Active Substance: POMALIDOMIDE

REACTIONS (1)
  - Disease progression [Unknown]
